FAERS Safety Report 17555973 (Version 1)
Quarter: 2020Q1

REPORT INFORMATION
  Report Type: Spontaneous
  Country: FR (occurrence: FR)
  Receive Date: 20200318
  Receipt Date: 20200318
  Transmission Date: 20200409
  Serious: Yes (Hospitalization)
  Sender: FDA-Public Use
  Company Number: FR-MYLANLABS-2020M1027302

PATIENT
  Age: 48 Year
  Sex: Male
  Weight: 96 kg

DRUGS (15)
  1. LEVETIRACETAM  MYLAN [Suspect]
     Active Substance: LEVETIRACETAM
     Indication: EPILEPSY
     Dosage: 1000 MILLIGRAM, QD
     Route: 048
     Dates: start: 20200115
  2. CEFOTAXIME [Suspect]
     Active Substance: CEFOTAXIME SODIUM
     Indication: MENINGITIS
     Dosage: 1 GRAM, QD
     Route: 042
     Dates: start: 20200116, end: 20200120
  3. AMOXICILLINE PANPHARMA [Suspect]
     Active Substance: AMOXICILLIN
     Indication: MENINGITIS
     Dosage: 16 GRAM, QD
     Route: 042
     Dates: start: 20200116, end: 20200124
  4. XATRAL                             /00975302/ [Suspect]
     Active Substance: ALFUZOSIN HYDROCHLORIDE
     Indication: URINARY RETENTION
     Dosage: 10 MILLIGRAM, QD
     Route: 048
     Dates: start: 20200115, end: 20200118
  5. DEBRIDAT                           /00465202/ [Concomitant]
     Active Substance: TRIMEBUTINE
     Dosage: UNK
  6. PHLOROGLUCINOL [Concomitant]
     Active Substance: PHLOROGLUCINOL
     Dosage: UNK
  7. DIAZEPAM. [Concomitant]
     Active Substance: DIAZEPAM
     Dosage: UNK
  8. PANTOPRAZOLE [Concomitant]
     Active Substance: PANTOPRAZOLE
     Dosage: UNK
  9. SACUBITRIL W/VALSARTAN [Suspect]
     Active Substance: SACUBITRIL\VALSARTAN
     Indication: CARDIAC FAILURE
     Dosage: 2 DOSAGE FORM, QD
     Route: 048
     Dates: end: 20200124
  10. BISOPROLOL                         /00802602/ [Concomitant]
     Active Substance: BISOPROLOL
     Dosage: UNK
  11. LOVENOX [Concomitant]
     Active Substance: ENOXAPARIN SODIUM
     Dosage: UNK
  12. FUROSEMIDE ARROW [Suspect]
     Active Substance: FUROSEMIDE
     Indication: ANGIOPATHY
     Dosage: 80 MILLIGRAM, QD
     Route: 048
     Dates: start: 20200107
  13. NEFOPAM                            /00396102/ [Concomitant]
     Active Substance: NEFOPAM HYDROCHLORIDE
     Dosage: UNK
  14. VENLAFAXINE [Concomitant]
     Active Substance: VENLAFAXINE HYDROCHLORIDE
     Dosage: UNK
  15. QUESTRAN [Concomitant]
     Active Substance: CHOLESTYRAMINE
     Dosage: UNK

REACTIONS (2)
  - Acute kidney injury [Recovering/Resolving]
  - Tubulointerstitial nephritis [Recovering/Resolving]

NARRATIVE: CASE EVENT DATE: 20200122
